FAERS Safety Report 4875007-0 (Version None)
Quarter: 2006Q1

REPORT INFORMATION
  Report Type: 
  Country: None (occurrence: None)
  Receive Date: 20060104
  Receipt Date: 20051220
  Transmission Date: 20060701
  Serious: Yes (Disabling, Other)
  Sender: FDA-Public Use
  Company Number: 200512298BWH

PATIENT
  Age: 68 Year
  Sex: Male
  Weight: 97.0698 kg

DRUGS (12)
  1. LEVITRA [Suspect]
     Indication: ERECTILE DYSFUNCTION
     Dosage: 20 MG, TOTAL DAILY, ORAL
     Route: 048
  2. METFORMIN [Concomitant]
  3. LISINOPRIL [Concomitant]
  4. SINEMET [Concomitant]
  5. MIRAPEX [Concomitant]
  6. STALEVO 100 [Concomitant]
  7. ANTIDEPRESSANT [Concomitant]
  8. RANITIDINE HYDROCHLORIDE [Concomitant]
  9. LORATADINE [Concomitant]
  10. VENLAFAXINE HCL [Concomitant]
  11. ASPIRIN [Concomitant]
  12. SINEMET CR [Concomitant]

REACTIONS (19)
  - BLINDNESS [None]
  - DIABETES MELLITUS [None]
  - DIABETIC COMPLICATION [None]
  - DRUG INEFFECTIVE [None]
  - EYE PAIN [None]
  - MASS [None]
  - MASTOCYTOSIS [None]
  - MUSCULOSKELETAL STIFFNESS [None]
  - OPTIC NEURITIS [None]
  - OPTIC NEUROPATHY [None]
  - PAPILLOEDEMA [None]
  - PHOTOPHOBIA [None]
  - PUPILLARY REFLEX IMPAIRED [None]
  - SCLERAL PIGMENTATION [None]
  - TEMPORAL ARTERITIS [None]
  - THYROID NEOPLASM [None]
  - VISION BLURRED [None]
  - VISUAL ACUITY REDUCED [None]
  - VISUAL DISTURBANCE [None]
